FAERS Safety Report 7740157-8 (Version None)
Quarter: 2011Q3

REPORT INFORMATION
  Report Type: 
  Country: None (occurrence: None)
  Receive Date: 20110909
  Receipt Date: 20110831
  Transmission Date: 20111222
  Serious: Yes (Hospitalization)
  Sender: FDA-Public Use
  Company Number: FR-ROCHE-774627

PATIENT
  Sex: Male
  Weight: 73.2 kg

DRUGS (16)
  1. NEORAL [Suspect]
     Dosage: DOSE: 100 MG IN MORNING, 100 MG IN EVENING
     Route: 048
  2. NEORAL [Suspect]
     Indication: IMMUNOSUPPRESSANT DRUG THERAPY
     Dosage: 100  MG IN THE MORNING AND 125 MG IN THE EVENING
     Route: 048
     Dates: start: 20110213
  3. ALPRAZOLAM [Concomitant]
     Dosage: ALPRAZOLAM 50, 1 TAB IN EVENING
  4. EUPRESSYL [Concomitant]
     Dosage: EUPRESSYL 90 X 3 A DAY
  5. OMEPRAZOLE [Concomitant]
     Dosage: 40 ONCE A DAY
  6. MYCOPHENOLATE MOFETIL [Suspect]
     Indication: IMMUNOSUPPRESSANT DRUG THERAPY
     Route: 048
     Dates: start: 20110213
  7. BACTRIM [Concomitant]
     Dosage: REPORTED AS BACTRIM FEEBLE
  8. CORDARONE [Concomitant]
     Dosage: DOSE: 200, 1 TABLET IN MORNING
  9. BISOPROLOL FUMARATE [Concomitant]
     Dosage: DOSE 10, 1 TAB A DAY
  10. ACETAMINOPHEN [Concomitant]
     Dosage: IF PAIN
  11. KAYEXALATE [Concomitant]
     Dosage: REPORTED AS KEYEXALATE 1 CM ONE ON TWO
  12. VALACYCLOVIR HYDROCHLORIDE [Concomitant]
     Dosage: DOSE: 500 2 TAB X 3 A DAY
  13. CINACALCET HYDROCHLORIDE [Concomitant]
     Dosage: DOSE: 60, 1 A DAY
  14. MYCOPHENOLATE MOFETIL [Suspect]
     Route: 048
  15. PREDNISOLONE [Suspect]
     Indication: IMMUNOSUPPRESSANT DRUG THERAPY
     Dosage: DAILY
     Route: 048
     Dates: start: 20110213
  16. ARANESP [Concomitant]
     Dosage: DOSE: 80, ONE INJECTION A WEEK

REACTIONS (7)
  - RENAL FAILURE ACUTE [None]
  - URINARY RETENTION [None]
  - URINOMA [None]
  - HYPERKALAEMIA [None]
  - NEOPLASM PROSTATE [None]
  - ANAEMIA [None]
  - RENAL TUBULAR NECROSIS [None]
